FAERS Safety Report 5570374-7 (Version None)
Quarter: 2007Q4

REPORT INFORMATION
  Report Type: 
  Country: None (occurrence: None)
  Receive Date: 20071219
  Receipt Date: 20071219
  Transmission Date: 20080405
  Serious: No
  Sender: FDA-Public Use
  Company Number: None

PATIENT
  Age: 62 Year
  Sex: Male
  Weight: 69.4003 kg

DRUGS (13)
  1. FLUTICASONE PROPIONATE [Suspect]
     Dosage: 110 MCG ORAL INHALER PO
     Route: 048
     Dates: start: 20070615
  2. ATORVASTATIN [Concomitant]
  3. LEVOTHYROXINE SODIUM [Concomitant]
  4. LOSARTAN POTASSIUM [Concomitant]
  5. MIRTAZAPINE [Concomitant]
  6. OMEPRAZOLE [Concomitant]
  7. PLAVIX [Concomitant]
  8. CLONAZEPAM [Concomitant]
  9. QUETIAPINE [Concomitant]
  10. ALBUTEROL [Concomitant]
  11. METAMUCIL [Concomitant]
  12. PEPTO BISMOL [Concomitant]
  13. ACETAMINOPHEN [Concomitant]

REACTIONS (1)
  - CANDIDIASIS [None]
